FAERS Safety Report 15786051 (Version 2)
Quarter: 2019Q1

REPORT INFORMATION
  Report Type: Report from Study
  Country: US (occurrence: US)
  Receive Date: 20190103
  Receipt Date: 20190206
  Transmission Date: 20190417
  Serious: No
  Sender: FDA-Public Use
  Company Number: US-SA-2019SA000657

PATIENT
  Age: 51 Year
  Sex: Female

DRUGS (1)
  1. TERIFLUNOMIDE. [Suspect]
     Active Substance: TERIFLUNOMIDE
     Indication: MULTIPLE SCLEROSIS
     Dosage: 1 DF, QD
     Route: 048
     Dates: start: 2018

REACTIONS (5)
  - Gastrooesophageal reflux disease [Recovering/Resolving]
  - Flatulence [Recovering/Resolving]
  - Burning sensation [Recovering/Resolving]
  - Abdominal distension [Recovering/Resolving]
  - Depression [Unknown]
